FAERS Safety Report 8352028-7 (Version None)
Quarter: 2012Q2

REPORT INFORMATION
  Report Type: 
  Country: None (occurrence: None)
  Receive Date: 20120510
  Receipt Date: 20120510
  Transmission Date: 20120825
  Serious: Yes (Hospitalization, Other)
  Sender: FDA-Public Use
  Company Number: None

PATIENT
  Age: 72 Year
  Sex: Male
  Weight: 146.2 kg

DRUGS (1)
  1. PAZOPANIB [Suspect]
     Indication: RENAL CELL CARCINOMA
     Dosage: 400 MG BID PO
     Route: 048
     Dates: start: 20111118, end: 20120417

REACTIONS (5)
  - DIARRHOEA [None]
  - FATIGUE [None]
  - VOMITING [None]
  - PAIN [None]
  - NAUSEA [None]
